FAERS Safety Report 12376782 (Version 2)
Quarter: 2016Q2

REPORT INFORMATION
  Report Type: Report from Study
  Country: US (occurrence: US)
  Receive Date: 20160517
  Receipt Date: 20160517
  Transmission Date: 20160815
  Serious: No
  Sender: FDA-Public Use
  Company Number: US-MALLINCKRODT-T201503251

PATIENT
  Age: 32 Year
  Sex: Female

DRUGS (1)
  1. REPOSITORY CORTICOTROPIN INJECTION [Suspect]
     Active Substance: CORTICOTROPIN
     Indication: RELAPSING-REMITTING MULTIPLE SCLEROSIS
     Dosage: 120 UNITS PER DAY
     Route: 065
     Dates: start: 20130405, end: 20130426

REACTIONS (8)
  - Swelling [Unknown]
  - Fatigue [Unknown]
  - Restlessness [Unknown]
  - Nervousness [Unknown]
  - Fluid retention [Unknown]
  - Insomnia [Unknown]
  - Gastrointestinal tract irritation [Unknown]
  - Hyperhidrosis [Unknown]

NARRATIVE: CASE EVENT DATE: 201304
